FAERS Safety Report 5114702-5 (Version None)
Quarter: 2006Q3

REPORT INFORMATION
  Report Type: 
  Country: None (occurrence: None)
  Receive Date: 20060926
  Receipt Date: 20060914
  Transmission Date: 20061208
  Serious: Yes (Death, Other)
  Sender: FDA-Public Use
  Company Number: US-JNJFOC-20060903532

PATIENT
  Sex: Female

DRUGS (15)
  1. REMICADE [Suspect]
     Indication: RHEUMATOID ARTHRITIS
     Route: 042
  2. OPIOIDS [Suspect]
     Indication: DRUG USE FOR UNKNOWN INDICATION
  3. ANALGESICS [Suspect]
     Indication: DRUG USE FOR UNKNOWN INDICATION
  4. METHOTREXATE [Concomitant]
  5. EFFEXOR [Concomitant]
  6. CELEBREX [Concomitant]
  7. DARVOCET [Concomitant]
  8. PREDNISONE TAB [Concomitant]
  9. XANAX [Concomitant]
  10. ELAVIL [Concomitant]
  11. FOLIC ACID [Concomitant]
  12. MULTIVITAMIN [Concomitant]
  13. TYLENOL [Concomitant]
  14. ASCORBIC ACID [Concomitant]
  15. VITAMIN E [Concomitant]

REACTIONS (2)
  - ADVERSE DRUG REACTION [None]
  - DEATH [None]
